FAERS Safety Report 21909772 (Version 8)
Quarter: 2025Q1

REPORT INFORMATION
  Report Type: Report from Study
  Country: US (occurrence: US)
  Receive Date: 20230125
  Receipt Date: 20250327
  Transmission Date: 20250409
  Serious: Yes (Other)
  Sender: TAKEDA
  Company Number: US-TAKEDA-US202016828

PATIENT
  Sex: Female

DRUGS (7)
  1. HUMAN IMMUNOGLOBULIN G [Suspect]
     Active Substance: HUMAN IMMUNOGLOBULIN G
     Indication: Immunodeficiency common variable
  2. GAMMAGARD LIQUID [Suspect]
     Active Substance: HUMAN IMMUNOGLOBULIN G
     Indication: Primary immunodeficiency syndrome
  3. GAMMAGARD LIQUID [Suspect]
     Active Substance: HUMAN IMMUNOGLOBULIN G
     Indication: Immunodeficiency common variable
     Dosage: UNK, Q4WEEKS
  4. GAMMAGARD LIQUID [Suspect]
     Active Substance: HUMAN IMMUNOGLOBULIN G
     Dosage: 55 GRAM, Q3WEEKS
  5. GAMMAGARD LIQUID [Suspect]
     Active Substance: HUMAN IMMUNOGLOBULIN G
  6. HUMAN IMMUNOGLOBULIN G [Suspect]
     Active Substance: HUMAN IMMUNOGLOBULIN G
     Indication: Product used for unknown indication
  7. HIZENTRA [Concomitant]
     Active Substance: HUMAN IMMUNOGLOBULIN G

REACTIONS (24)
  - Renal impairment [Unknown]
  - Pneumonia [Recovering/Resolving]
  - Viral infection [Unknown]
  - Blood immunoglobulin G abnormal [Unknown]
  - Incorrect drug administration rate [Unknown]
  - Illness [Unknown]
  - Renal pain [Not Recovered/Not Resolved]
  - Procedural failure [Unknown]
  - Procedural pain [Unknown]
  - Renal disorder [Unknown]
  - Pain [Unknown]
  - Upper respiratory tract infection [Unknown]
  - Nausea [Unknown]
  - Migraine [Unknown]
  - Bronchitis [Recovering/Resolving]
  - Infection [Unknown]
  - Infusion related reaction [Unknown]
  - Fall [Unknown]
  - Sinusitis [Recovering/Resolving]
  - Wheezing [Unknown]
  - Cough [Unknown]
  - Pyrexia [Unknown]
  - Headache [Unknown]
  - Myalgia [Unknown]
